FAERS Safety Report 15643013 (Version 1)
Quarter: 2018Q4

REPORT INFORMATION
  Report Type: Spontaneous
  Country: US (occurrence: US)
  Receive Date: 20181120
  Receipt Date: 20181120
  Transmission Date: 20190205
  Serious: No
  Sender: FDA-Public Use
  Company Number: None

PATIENT
  Age: 58 Year
  Sex: Female
  Weight: 69.75 kg

DRUGS (6)
  1. MELATONIN [Concomitant]
     Active Substance: MELATONIN
  2. TOPIRAMATE. [Suspect]
     Active Substance: TOPIRAMATE
     Indication: MIGRAINE PROPHYLAXIS
     Dosage: ?          QUANTITY:2 TABLET(S);?
     Route: 048
     Dates: start: 20170301, end: 20180926
  3. ASPRIN [Concomitant]
     Active Substance: ASPIRIN
  4. TRAZODONE [Concomitant]
     Active Substance: TRAZODONE HYDROCHLORIDE
  5. VITAMIN D3 [Concomitant]
     Active Substance: CHOLECALCIFEROL
  6. MIRALAX [Concomitant]
     Active Substance: POLYETHYLENE GLYCOL 3350

REACTIONS (8)
  - Osteoporosis [None]
  - Urine phosphorus increased [None]
  - Muscle spasms [None]
  - Blood magnesium increased [None]
  - Hypercalciuria [None]
  - Alopecia [None]
  - Blood uric acid increased [None]
  - Renal disorder [None]

NARRATIVE: CASE EVENT DATE: 20180716
